FAERS Safety Report 4916439-1 (Version None)
Quarter: 2006Q1

REPORT INFORMATION
  Report Type: 
  Country: None (occurrence: None)
  Receive Date: 20060214
  Receipt Date: 20060203
  Transmission Date: 20060701
  Serious: Yes (Death)
  Sender: FDA-Public Use
  Company Number: 200610461GDS

PATIENT
  Age: 82 Year
  Sex: Male

DRUGS (6)
  1. CIPROFLOXACIN [Suspect]
     Dosage: 800 MG, TOTAL DAILY, INTRAVENOUS
     Route: 042
  2. GENTAMICIN [Concomitant]
  3. LASIX [Concomitant]
  4. MAGNESIUM-ROUGIER [Concomitant]
  5. OXAZEPAM [Concomitant]
  6. REMINYL/USA/ [Concomitant]

REACTIONS (3)
  - BLOOD CREATINE PHOSPHOKINASE INCREASED [None]
  - CHEST PAIN [None]
  - RENAL FAILURE ACUTE [None]
